FAERS Safety Report 5830705-7 (Version None)
Quarter: 2008Q3

REPORT INFORMATION
  Report Type: 
  Country: None (occurrence: None)
  Receive Date: 20080801
  Receipt Date: 20071016
  Transmission Date: 20090109
  Serious: No
  Sender: FDA-Public Use
  Company Number: US-BRISTOL-MYERS SQUIBB COMPANY-13944038

PATIENT
  Sex: Male

DRUGS (4)
  1. WARFARIN SODIUM [Suspect]
  2. LOPRESSOR [Concomitant]
  3. POTASSIUM CHLORIDE [Concomitant]
  4. FELODIPINE [Concomitant]

REACTIONS (2)
  - GINGIVAL BLEEDING [None]
  - GINGIVAL HYPOPLASIA [None]
